FAERS Safety Report 17998513 (Version 1)
Quarter: 2020Q3

REPORT INFORMATION
  Report Type: Spontaneous
  Country: US (occurrence: US)
  Receive Date: 20200709
  Receipt Date: 20200709
  Transmission Date: 20201103
  Serious: No
  Sender: FDA-Public Use
  Company Number: US-TAKEDA-2020TUS029626

PATIENT
  Age: 71 Year
  Sex: Female
  Weight: 61.2 kg

DRUGS (8)
  1. RYTARY [Suspect]
     Active Substance: CARBIDOPA\LEVODOPA
     Indication: PRODUCT USED FOR UNKNOWN INDICATION
     Dosage: UNK UNK, QD
     Route: 065
     Dates: end: 202004
  2. SEROQUEL [Concomitant]
     Active Substance: QUETIAPINE FUMARATE
     Dosage: UNK
     Route: 065
  3. LEXAPRO [Concomitant]
     Active Substance: ESCITALOPRAM OXALATE
     Dosage: UNK
     Route: 065
  4. RYTARY [Suspect]
     Active Substance: CARBIDOPA\LEVODOPA
     Dosage: UNK UNK, QD
     Route: 065
     Dates: start: 202004
  5. REMERON [Concomitant]
     Active Substance: MIRTAZAPINE
     Dosage: UNK
     Route: 065
  6. PRAMIPEXOLE. [Concomitant]
     Active Substance: PRAMIPEXOLE
     Dosage: UNK
     Route: 065
  7. AMANTADINE. [Suspect]
     Active Substance: AMANTADINE HYDROCHLORIDE
     Indication: DYSKINESIA
     Dosage: 274 MILLIGRAM, QD
     Route: 048
     Dates: start: 201801
  8. COLCHICINE. [Suspect]
     Active Substance: COLCHICINE
     Indication: GOUT
     Dosage: 0.6 MILLIGRAM, QD
     Route: 065

REACTIONS (7)
  - Abdominal discomfort [Unknown]
  - Burning sensation [Not Recovered/Not Resolved]
  - Sciatica [Recovering/Resolving]
  - Flatulence [Not Recovered/Not Resolved]
  - Dyspepsia [Unknown]
  - On and off phenomenon [Unknown]
  - Sensory disturbance [Unknown]

NARRATIVE: CASE EVENT DATE: 20200306
